FAERS Safety Report 20655515 (Version 1)
Quarter: 2022Q1

REPORT INFORMATION
  Report Type: Spontaneous
  Country: US (occurrence: US)
  Receive Date: 20220330
  Receipt Date: 20220330
  Transmission Date: 20220423
  Serious: Yes (Other)
  Sender: FDA-Public Use
  Company Number: US-NOVARTISPH-NVSC2022US071230

PATIENT
  Age: 38 Year
  Sex: Male

DRUGS (1)
  1. METHOTREXATE [Suspect]
     Active Substance: METHOTREXATE
     Indication: Retinopathy proliferative
     Dosage: 400 UG, QW
     Route: 031

REACTIONS (2)
  - Corneal epithelium defect [Recovered/Resolved]
  - Product use in unapproved indication [Unknown]
